FAERS Safety Report 10039481 (Version 2)
Quarter: 2014Q1

REPORT INFORMATION
  Report Type: Spontaneous
  Country: DE (occurrence: DE)
  Receive Date: 20140326
  Receipt Date: 20140326
  Transmission Date: 20141002
  Serious: Yes (Death)
  Sender: FDA-Public Use
  Company Number: DE-JNJFOC-20140206018

PATIENT
  Age: 88 Year
  Sex: Male
  Weight: 57 kg

DRUGS (6)
  1. XARELTO [Suspect]
     Indication: ATRIAL FIBRILLATION
     Route: 048
     Dates: start: 201001, end: 201312
  2. XARELTO [Suspect]
     Indication: CEREBROVASCULAR ACCIDENT PROPHYLAXIS
     Route: 048
     Dates: start: 201001, end: 201312
  3. BISOPROLOL [Concomitant]
     Route: 065
  4. TAMSULOSIN [Concomitant]
     Route: 065
  5. SIMVASTATIN [Concomitant]
     Route: 065
  6. DUOTRAV [Concomitant]
     Route: 065

REACTIONS (2)
  - Bleeding varicose vein [Fatal]
  - Exsanguination [Fatal]
